FAERS Safety Report 7990741-1 (Version None)
Quarter: 2011Q4

REPORT INFORMATION
  Report Type: 
  Country: None (occurrence: None)
  Receive Date: 20111219
  Receipt Date: 20111219
  Transmission Date: 20120403
  Serious: Yes (Other)
  Sender: FDA-Public Use
  Company Number: None

PATIENT
  Age: 14 Year
  Sex: Male
  Weight: 43.091 kg

DRUGS (1)
  1. AZITHROMYCIN [Suspect]
     Indication: OTITIS MEDIA
     Dosage: 250MG
     Route: 048
     Dates: start: 20111206, end: 20111207

REACTIONS (4)
  - PARAESTHESIA [None]
  - OTITIS MEDIA [None]
  - HYPERSENSITIVITY [None]
  - PRURITUS [None]
